FAERS Safety Report 24789224 (Version 1)
Quarter: 2024Q4

REPORT INFORMATION
  Report Type: Other
  Country: AU (occurrence: AU)
  Receive Date: 20241230
  Receipt Date: 20241230
  Transmission Date: 20250115
  Serious: Yes (Other)
  Sender: LUPIN
  Company Number: AU-LUPIN PHARMA CANADA-2024-12705

PATIENT
  Age: 31 Year
  Sex: Female

DRUGS (1)
  1. CEPHALEXIN [Suspect]
     Active Substance: CEPHALEXIN
     Indication: Product used for unknown indication
     Dosage: UNK
     Route: 065

REACTIONS (13)
  - Abdominal pain [Unknown]
  - Anxiety [Unknown]
  - Chest pain [Unknown]
  - Diarrhoea [Unknown]
  - Dysphagia [Unknown]
  - Dyspnoea [Unknown]
  - Feeling hot [Unknown]
  - Malaise [Unknown]
  - Palpitations [Unknown]
  - Peripheral swelling [Unknown]
  - Pruritus [Unknown]
  - Rash pruritic [Unknown]
  - Wheezing [Unknown]
